FAERS Safety Report 7789083-9 (Version None)
Quarter: 2011Q3

REPORT INFORMATION
  Report Type: 
  Country: None (occurrence: None)
  Receive Date: 20110930
  Receipt Date: 20110923
  Transmission Date: 20111222
  Serious: Yes (Hospitalization, Other)
  Sender: FDA-Public Use
  Company Number: US-B.I. PHARMACEUTICALS,INC./RIDGEFIELD-2011-BP-21386BP

PATIENT
  Sex: Female

DRUGS (7)
  1. CRESTOR [Concomitant]
     Indication: PROPHYLAXIS
     Dosage: 5 MG
     Route: 048
  2. PRADAXA [Suspect]
     Indication: ATRIAL FIBRILLATION
     Dosage: 300 MG
     Route: 048
     Dates: start: 20110625, end: 20110824
  3. METOPROLOL [Concomitant]
     Indication: ATRIAL FIBRILLATION
     Dosage: 100 MG
     Route: 048
  4. PRADAXA [Suspect]
     Indication: CEREBROVASCULAR ACCIDENT
  5. NORVASC [Concomitant]
     Indication: PROPHYLAXIS
     Dosage: 10 MG
     Route: 048
  6. BENAZEPRIL HYDROCHLORIDE [Concomitant]
     Indication: PROPHYLAXIS
     Dosage: 40 MG
     Route: 048
  7. TOPROL-XL [Concomitant]
     Dosage: 100 MG
     Route: 048

REACTIONS (2)
  - APHASIA [None]
  - TRANSIENT ISCHAEMIC ATTACK [None]
